FAERS Safety Report 9016659 (Version 2)
Quarter: 2013Q1

REPORT INFORMATION
  Report Type: Report from Study
  Country: GB (occurrence: GB)
  Receive Date: 20130117
  Receipt Date: 20130128
  Transmission Date: 20140127
  Serious: Yes (Death, Hospitalization, Other)
  Sender: FDA-Public Use
  Company Number: GB-AMGEN-GBRCT2012051204

PATIENT
  Age: 77 Year
  Sex: Male

DRUGS (3)
  1. ETANERCEPT [Suspect]
     Indication: RHEUMATOID ARTHRITIS
     Dosage: 25 MG, 2 TIMES/WK
     Dates: start: 20030516, end: 20110615
  2. ETANERCEPT [Suspect]
     Dosage: 25 MG, 2 TIMES/WK
     Dates: start: 20120515
  3. METHOTREXATE [Concomitant]
     Dosage: UNK
     Dates: start: 200612

REACTIONS (3)
  - Squamous cell carcinoma of lung [Fatal]
  - Pneumonia aspiration [Fatal]
  - Rheumatoid arthritis [Fatal]
